FAERS Safety Report 4285886-6 (Version None)
Quarter: 2004Q1

REPORT INFORMATION
  Report Type: 
  Country: None (occurrence: None)
  Receive Date: 20040204
  Receipt Date: 20040204
  Transmission Date: 20041129
  Serious: Yes (Other)
  Sender: FDA-Public Use
  Company Number: None

PATIENT
  Age: 58 Year
  Sex: Male
  Weight: 92.9874 kg

DRUGS (7)
  1. EFFEXOR [Suspect]
     Indication: DEPRESSION
     Dosage: 300 MG DAILY ORAL
     Route: 048
     Dates: start: 20030914, end: 20040110
  2. EFFEXOR [Suspect]
     Indication: POST-TRAUMATIC STRESS DISORDER
     Dosage: 300 MG DAILY ORAL
     Route: 048
     Dates: start: 20030914, end: 20040110
  3. QUETIAPINE [Concomitant]
  4. LOVASTATIN [Concomitant]
  5. ADALAT CC [Concomitant]
  6. LANSOPRAZOLE [Concomitant]
  7. COMBIVENT [Concomitant]

REACTIONS (5)
  - ASTHENIA [None]
  - HEARING IMPAIRED [None]
  - LOSS OF CONSCIOUSNESS [None]
  - MUSCLE RIGIDITY [None]
  - TREMOR [None]
